FAERS Safety Report 4708438-X (Version None)
Quarter: 2005Q3

REPORT INFORMATION
  Report Type: 
  Country: None (occurrence: None)
  Receive Date: 20050705
  Receipt Date: 20050627
  Transmission Date: 20060218
  Serious: Yes (Death)
  Sender: FDA-Public Use
  Company Number: GBWYE778427JUN05

PATIENT
  Age: 65 Year
  Sex: Female

DRUGS (6)
  1. EFFEXOR [Suspect]
     Indication: DEPRESSION
     Dosage: 75 MG 2X PER 1 DAY; UNKNOWN
     Route: 065
     Dates: start: 20010101
  2. ACETAMINOPHEN [Suspect]
  3. ASPIRIN [Concomitant]
  4. ATENOLOL [Concomitant]
  5. LANSOPRAZOLE [Concomitant]
  6. FRUSEMIDE [Concomitant]

REACTIONS (8)
  - ABNORMAL BEHAVIOUR [None]
  - COMPLETED SUICIDE [None]
  - CORONARY ARTERY DISEASE [None]
  - HEPATIC FAILURE [None]
  - HEPATIC NECROSIS [None]
  - INTENTIONAL MISUSE [None]
  - MALAISE [None]
  - OVERDOSE [None]
